FAERS Safety Report 7637792-4 (Version None)
Quarter: 2011Q3

REPORT INFORMATION
  Report Type: 
  Country: None (occurrence: None)
  Receive Date: 20110727
  Receipt Date: 20110726
  Transmission Date: 20111222
  Serious: No
  Sender: FDA-Public Use
  Company Number: US-ROXANE LABORATORIES, INC.-2011-RO-01066RO

PATIENT

DRUGS (1)
  1. BUTORPHANOL TARATRATE [Suspect]
     Route: 055

REACTIONS (2)
  - NAUSEA [None]
  - COLD SWEAT [None]
